FAERS Safety Report 11435224 (Version 1)
Quarter: 2015Q3

REPORT INFORMATION
  Report Type: Spontaneous
  Country: GB (occurrence: GB)
  Receive Date: 20150831
  Receipt Date: 20150831
  Transmission Date: 20151125
  Serious: Yes (Other)
  Sender: FDA-Public Use
  Company Number: GB-BANPHARM-20154101

PATIENT
  Age: 76 Year
  Sex: Male
  Weight: 90 kg

DRUGS (14)
  1. AMIODARONE [Concomitant]
     Active Substance: AMIODARONE
     Dosage: QD,
     Dates: start: 20150615, end: 20150709
  2. LANSOPRAZOLE. [Concomitant]
     Active Substance: LANSOPRAZOLE
     Dosage: BID,
     Dates: start: 20150615
  3. PARACETAMOL [Concomitant]
     Active Substance: ACETAMINOPHEN
     Dosage: QID,
     Dates: start: 20150615
  4. ATORVASTATIN [Concomitant]
     Active Substance: ATORVASTATIN
     Dosage: 1 DF, QD,
     Dates: start: 20150615
  5. ENALAPRIL [Concomitant]
     Active Substance: ENALAPRIL
     Dosage: BID,
     Dates: start: 20150615
  6. SALBUTAMOL [Concomitant]
     Active Substance: ALBUTEROL
     Dosage: 2 DF, PRN,
     Dates: start: 20150615
  7. IBUPROFEN UNKNOWN PRODUCT [Suspect]
     Active Substance: IBUPROFEN
     Dates: start: 20150611
  8. ADCAL [Concomitant]
     Dosage: 2 DF, BID,
     Dates: start: 20150709
  9. CLENIL MODULITE [Concomitant]
     Active Substance: BECLOMETHASONE DIPROPIONATE
     Dosage: 2 DF, BID,
     Dates: start: 20150615
  10. GLYCERYL TRINITRATE [Concomitant]
     Active Substance: NITROGLYCERIN
     Dosage: 1 DF, PRN,
     Dates: start: 20150615
  11. ALLOPURINOL. [Concomitant]
     Active Substance: ALLOPURINOL
     Dosage: QD,
     Dates: start: 20150615
  12. TRAVOPROST [Concomitant]
     Active Substance: TRAVOPROST
     Dosage: 1GTT, QD,
     Dates: start: 20150709
  13. LACTULOSE. [Concomitant]
     Active Substance: LACTULOSE
     Dosage: 10 ML, PRN,
     Dates: start: 20150615
  14. MACROGOL [Concomitant]
     Active Substance: POLYETHYLENE GLYCOLS
     Dates: start: 20150709

REACTIONS (2)
  - Loss of consciousness [Recovered/Resolved]
  - Dizziness [Recovered/Resolved]
